FAERS Safety Report 4474141-7 (Version None)
Quarter: 2004Q4

REPORT INFORMATION
  Report Type: 
  Country: None (occurrence: None)
  Receive Date: 20041008
  Receipt Date: 20040917
  Transmission Date: 20050328
  Serious: Yes (Life-Threatening, Hospitalization)
  Sender: FDA-Public Use
  Company Number: JP_040703700

PATIENT
  Age: 71 Year
  Sex: Male
  Weight: 47 kg

DRUGS (8)
  1. GEMZAR [Suspect]
     Indication: LUNG NEOPLASM MALIGNANT
     Dosage: 1000 MG/M2 OTHER
     Route: 050
     Dates: start: 20031110, end: 20040323
  2. TAXOTERE [Concomitant]
  3. ADALAT CC [Concomitant]
  4. CLEANAL (FUDOSTEINE) [Concomitant]
  5. SEREVENT [Concomitant]
  6. MEDICON (DEXTROMETHORPHAN HYDROBROMIDE) [Concomitant]
  7. MUCOSAL ^JAPAN^ (AMBROXOL HYDROCHLORIDE) [Concomitant]
  8. LASIX P (FUROSEMIDE) [Concomitant]

REACTIONS (1)
  - INTERSTITIAL LUNG DISEASE [None]
